FAERS Safety Report 22923212 (Version 2)
Quarter: 2023Q4

REPORT INFORMATION
  Report Type: Spontaneous
  Country: US (occurrence: None)
  Receive Date: 20230908
  Receipt Date: 20231219
  Transmission Date: 20240109
  Serious: No
  Sender: FDA-Public Use
  Company Number: US-ROCHE-3391057

PATIENT
  Age: 65 Year
  Sex: Female
  Weight: 34.05 kg

DRUGS (12)
  1. ENSPRYNG [Suspect]
     Active Substance: SATRALIZUMAB-MWGE
     Indication: Neuromyelitis optica spectrum disorder
     Dosage: ON 13/JUN/2023, HE RECEIVED LAST DOSE OF SUSPECT DRUG.
     Route: 058
     Dates: start: 20230411
  2. ENSPRYNG [Suspect]
     Active Substance: SATRALIZUMAB-MWGE
  3. ENSPRYNG [Suspect]
     Active Substance: SATRALIZUMAB-MWGE
  4. ENSPRYNG [Suspect]
     Active Substance: SATRALIZUMAB-MWGE
  5. LEVOFLOXACIN [Concomitant]
     Active Substance: LEVOFLOXACIN
     Indication: Urinary tract infection
     Route: 048
     Dates: start: 20230714
  6. GABAPENTIN [Concomitant]
     Active Substance: GABAPENTIN
     Dosage: STARTED BEFORE ENSPRYNG
     Route: 048
  7. DRONABINOL [Concomitant]
     Active Substance: DRONABINOL
     Dosage: STARTED BEFORE ENSPRYNG
     Route: 048
  8. METOPROLOL [Concomitant]
     Active Substance: METOPROLOL
     Indication: Cardiac failure
     Dosage: (0.5) 25 MG TABLET; STARTED BEFORE ENSPRYNG
     Route: 048
  9. TOLTERODINE TARTRATE [Concomitant]
     Active Substance: TOLTERODINE TARTRATE
     Indication: Hypertonic bladder
     Dosage: STARTED BEFORE ENSPRYNG
     Route: 048
  10. DULOXETINE [Concomitant]
     Active Substance: DULOXETINE
     Indication: Depression
     Dosage: STARTED BEFORE ENSPRYNG
     Route: 048
  11. DULOXETINE [Concomitant]
     Active Substance: DULOXETINE
     Indication: Neuralgia
  12. MIDODRINE [Concomitant]
     Active Substance: MIDODRINE
     Indication: Hypotension
     Dosage: STARTED BEFORE ENSPRYNG
     Route: 048

REACTIONS (3)
  - Product dose omission issue [Unknown]
  - Product complaint [Unknown]
  - No adverse event [Unknown]

NARRATIVE: CASE EVENT DATE: 20230714
